FAERS Safety Report 5586467-4 (Version None)
Quarter: 2008Q1

REPORT INFORMATION
  Report Type: 
  Country: None (occurrence: None)
  Receive Date: 20080110
  Receipt Date: 20080107
  Transmission Date: 20080703
  Serious: Yes (Other)
  Sender: FDA-Public Use
  Company Number: GB-JNJFOC-20080101298

PATIENT
  Sex: Female
  Weight: 68 kg

DRUGS (6)
  1. REMICADE [Suspect]
     Indication: RHEUMATOID ARTHRITIS
     Route: 042
  2. METHOTREXATE [Concomitant]
  3. PREDNISOLONE [Concomitant]
  4. CALCIUM GLUCONATE [Concomitant]
  5. FOLIC ACID [Concomitant]
  6. MELOXICAM [Concomitant]

REACTIONS (1)
  - CARCINOMA IN SITU OF SKIN [None]
